FAERS Safety Report 4692421-7 (Version None)
Quarter: 2005Q2

REPORT INFORMATION
  Report Type: 
  Country: None (occurrence: None)
  Receive Date: 20050615
  Receipt Date: 20050530
  Transmission Date: 20051028
  Serious: Yes (Hospitalization, Other)
  Sender: FDA-Public Use
  Company Number: 2004053298

PATIENT
  Age: 79 Year
  Sex: Male

DRUGS (14)
  1. LIPITOR [Suspect]
     Indication: HYPERLIPIDAEMIA
     Dosage: 10 MG (10 MG, 1 IN 1 D) ORAL
     Route: 048
     Dates: end: 20010803
  2. BIAXIN [Suspect]
     Indication: PNEUMONIA
     Dosage: 1000 MG (500 MG, 2 IN 1 D) ORAL
     Route: 048
     Dates: start: 20010701, end: 20010802
  3. DIGOXIN [Concomitant]
  4. ACETYLSALICYLIC ACID SRT [Concomitant]
  5. AVANDIA [Concomitant]
  6. COLCHICINE [Concomitant]
  7. COREG [Concomitant]
  8. FOLIC ACID [Concomitant]
  9. GLYBURIDE [Concomitant]
  10. HYDRALAZINE [Concomitant]
  11. LASIX [Concomitant]
  12. NITRO PATCH (GLYCERYL TRINITRATE) [Concomitant]
  13. VITAMIN B-12 [Concomitant]
  14. ZOPICLONE [Concomitant]

REACTIONS (8)
  - ALANINE AMINOTRANSFERASE INCREASED [None]
  - ASPARTATE AMINOTRANSFERASE INCREASED [None]
  - BLOOD ALKALINE PHOSPHATASE INCREASED [None]
  - BLOOD LACTATE DEHYDROGENASE INCREASED [None]
  - DRUG INTERACTION [None]
  - HYPERBILIRUBINAEMIA [None]
  - MYOSITIS [None]
  - RHABDOMYOLYSIS [None]
